FAERS Safety Report 13954845 (Version 1)
Quarter: 2017Q3

REPORT INFORMATION
  Report Type: Spontaneous
  Country: US (occurrence: US)
  Receive Date: 20170911
  Receipt Date: 20170911
  Transmission Date: 20171128
  Serious: No
  Sender: FDA-Public Use
  Company Number: None

PATIENT
  Age: 48 Year
  Sex: Female
  Weight: 61.2 kg

DRUGS (4)
  1. VITAMIN C [Concomitant]
     Active Substance: ASCORBIC ACID
  2. SYNTHROID [Suspect]
     Active Substance: LEVOTHYROXINE SODIUM
     Indication: AUTOIMMUNE THYROIDITIS
     Dosage: ?          QUANTITY:30 TABLET(S);?
     Dates: start: 20170910
  3. SYNTHROID [Suspect]
     Active Substance: LEVOTHYROXINE SODIUM
     Indication: LYME DISEASE
     Dosage: ?          QUANTITY:30 TABLET(S);?
     Dates: start: 20170910
  4. CALTRATE WITH VITAMIN D [Concomitant]
     Active Substance: CALCIUM CARBONATE\CHOLECALCIFEROL

REACTIONS (7)
  - Hepatic cirrhosis [None]
  - Tooth disorder [None]
  - Headache [None]
  - Back pain [None]
  - Palpitations [None]
  - Tendon pain [None]
  - Bone loss [None]

NARRATIVE: CASE EVENT DATE: 20170910
